FAERS Safety Report 9252605 (Version 1)
Quarter: 2013Q2

REPORT INFORMATION
  Report Type: Spontaneous
  Country: SV (occurrence: SV)
  Receive Date: 20130424
  Receipt Date: 20130424
  Transmission Date: 20140414
  Serious: Yes (Hospitalization)
  Sender: FDA-Public Use
  Company Number: SV-GILEAD-2013-0074013

PATIENT
  Age: 80 Year
  Sex: Female

DRUGS (4)
  1. AMBRISENTAN [Suspect]
     Indication: PRODUCT USED FOR UNKNOWN INDICATION
     Dosage: 5 MG, UNK
     Route: 048
  2. LASIX                              /00032601/ [Concomitant]
  3. SUCRALFATE [Concomitant]
  4. LEVOSULPIRIDE [Concomitant]

REACTIONS (1)
  - Pulmonary oedema [Unknown]
